FAERS Safety Report 5901299-2 (Version None)
Quarter: 2008Q3

REPORT INFORMATION
  Report Type: 
  Country: None (occurrence: None)
  Receive Date: 20080929
  Receipt Date: 20080925
  Transmission Date: 20090109
  Serious: Yes (Other)
  Sender: FDA-Public Use
  Company Number: BE-BAYER-200818203GPV

PATIENT
  Age: 42 Year
  Sex: Female
  Weight: 82 kg

DRUGS (2)
  1. AVELOX [Suspect]
     Indication: TRACHEITIS
     Route: 065
     Dates: start: 20070216
  2. FLEMOXIN [Concomitant]
     Indication: TRACHEITIS
     Route: 065
     Dates: start: 20070201, end: 20070201

REACTIONS (7)
  - EYE PAIN [None]
  - IRIDOCYCLITIS [None]
  - MYDRIASIS [None]
  - PHOTOPHOBIA [None]
  - RETINAL DEPIGMENTATION [None]
  - UVEITIS [None]
  - VISUAL ACUITY REDUCED [None]
